FAERS Safety Report 11514483 (Version 1)
Quarter: 2015Q3

REPORT INFORMATION
  Report Type: Spontaneous
  Country: US (occurrence: US)
  Receive Date: 20150916
  Receipt Date: 20150916
  Transmission Date: 20151125
  Serious: Yes (Hospitalization, Other)
  Sender: FDA-Public Use
  Company Number: US-PFIZER INC-2015303768

PATIENT
  Age: 86 Year
  Sex: Male
  Weight: 75 kg

DRUGS (3)
  1. COUMADIN [Suspect]
     Active Substance: WARFARIN SODIUM
     Indication: ATRIAL FIBRILLATION
     Dosage: ALTERNATING DOSES OF 5 AND 2.5 MG
     Dates: end: 201509
  2. METOPROLOL [Concomitant]
     Active Substance: METOPROLOL
  3. TIKOSYN [Suspect]
     Active Substance: DOFETILIDE
     Indication: ATRIAL FIBRILLATION
     Dosage: 250 ?G, 2X/DAY

REACTIONS (7)
  - Headache [Unknown]
  - Traumatic intracranial haemorrhage [Unknown]
  - Electrocardiogram QT prolonged [Not Recovered/Not Resolved]
  - Fall [Unknown]
  - Balance disorder [Unknown]
  - Disorientation [Unknown]
  - Brain contusion [Unknown]

NARRATIVE: CASE EVENT DATE: 201509
